FAERS Safety Report 25300643 (Version 2)
Quarter: 2025Q4

REPORT INFORMATION
  Report Type: Spontaneous
  Country: EU (occurrence: EU)
  Receive Date: 20250512
  Receipt Date: 20251010
  Transmission Date: 20260117
  Serious: Yes (Other)
  Sender: PFIZER
  Company Number: None

PATIENT
  Age: 78 Year
  Sex: Male

DRUGS (6)
  1. LEVETIRACETAM [Suspect]
     Active Substance: LEVETIRACETAM
     Indication: Medication error
     Dosage: 500 MG, SINGLE
     Route: 048
     Dates: start: 20250105, end: 20250105
  2. SERTRALINE HYDROCHLORIDE [Suspect]
     Active Substance: SERTRALINE HYDROCHLORIDE
     Indication: Medication error
     Dosage: 100 MG, SINGLE
     Route: 048
     Dates: start: 20250105, end: 20250105
  3. CLOZAPINE [Suspect]
     Active Substance: CLOZAPINE
     Indication: Medication error
     Dosage: 50 MG, SINGLE
     Route: 048
     Dates: start: 20250105, end: 20250105
  4. BENSERAZIDE HYDROCHLORIDE\LEVODOPA [Suspect]
     Active Substance: BENSERAZIDE HYDROCHLORIDE\LEVODOPA
     Dosage: NOT ADMINISTERED
     Route: 048
  5. LEVOTHYROXINE [Suspect]
     Active Substance: LEVOTHYROXINE
     Dosage: NOT ADMINISTERED
     Route: 048
  6. BENSERAZIDE HYDROCHLORIDE\LEVODOPA [Suspect]
     Active Substance: BENSERAZIDE HYDROCHLORIDE\LEVODOPA
     Dosage: NOT ADMINISTERED
     Route: 048

REACTIONS (4)
  - Asthenia [Recovered/Resolved]
  - Cognitive disorder [Recovered/Resolved]
  - Wrong product administered [Recovered/Resolved]
  - Wrong patient received product [Recovered/Resolved]

NARRATIVE: CASE EVENT DATE: 20250105
